FAERS Safety Report 24442681 (Version 2)
Quarter: 2024Q4

REPORT INFORMATION
  Report Type: Report from Study
  Country: JP (occurrence: JP)
  Receive Date: 20241016
  Receipt Date: 20241017
  Transmission Date: 20250115
  Serious: No
  Sender: ROCHE
  Company Number: JP-CHUGAI-2024014674

PATIENT
  Age: 73 Year
  Sex: Female
  Weight: 42.0 kg

DRUGS (10)
  1. HEMLIBRA [Suspect]
     Active Substance: EMICIZUMAB-KXWH
     Indication: Acquired haemophilia
     Dosage: UNK
     Route: 058
     Dates: start: 20231011, end: 20231101
  2. PREDNISOLONE [Concomitant]
     Active Substance: PREDNISOLONE
     Dosage: 60 MG/DAY
     Dates: start: 20230904, end: 20231009
  3. PREDNISOLONE [Concomitant]
     Active Substance: PREDNISOLONE
     Dosage: 55MG/DAY
     Dates: start: 20231010, end: 20231016
  4. PREDNISOLONE [Concomitant]
     Active Substance: PREDNISOLONE
     Dosage: 50 MG/DAY
     Dates: start: 20231017, end: 20231023
  5. PREDNISOLONE [Concomitant]
     Active Substance: PREDNISOLONE
     Dosage: 40 MG/DAY
     Dates: start: 20231024, end: 20231030
  6. PREDNISOLONE [Concomitant]
     Active Substance: PREDNISOLONE
     Dosage: 35MG/DAY
     Dates: start: 20231031, end: 20231106
  7. PREDNISOLONE [Concomitant]
     Active Substance: PREDNISOLONE
     Dosage: 30MG/DAY
     Dates: start: 20231107, end: 20231120
  8. PREDNISOLONE [Concomitant]
     Active Substance: PREDNISOLONE
     Dosage: 25MG/DAY
     Dates: start: 20231121, end: 20231127
  9. PREDNISOLONE [Concomitant]
     Active Substance: PREDNISOLONE
     Dosage: 20 MG/DAY
     Dates: start: 20231128, end: 20231206
  10. PREDNISOLONE [Concomitant]
     Active Substance: PREDNISOLONE
     Dosage: 15MG/DAY
     Dates: start: 20231207

REACTIONS (1)
  - Blood fibrinogen decreased [Unknown]
